FAERS Safety Report 9175011 (Version 1)
Quarter: 2013Q1

REPORT INFORMATION
  Report Type: Spontaneous
  Country: FR (occurrence: FR)
  Receive Date: 20130320
  Receipt Date: 20130320
  Transmission Date: 20140127
  Serious: Yes (Life-Threatening, Hospitalization)
  Sender: FDA-Public Use
  Company Number: FR-GLAXOSMITHKLINE-B0874866A

PATIENT
  Age: 65 Year
  Sex: Male

DRUGS (6)
  1. NIMBEX [Suspect]
     Indication: INDUCTION OF ANAESTHESIA
     Route: 042
     Dates: start: 20100316, end: 20100316
  2. ZINNAT [Suspect]
     Indication: PRODUCT USED FOR UNKNOWN INDICATION
     Route: 042
     Dates: start: 20100316, end: 20100316
  3. TARGOCID [Suspect]
     Indication: PRODUCT USED FOR UNKNOWN INDICATION
     Route: 042
     Dates: start: 20100316, end: 20100316
  4. ETOMIDATE [Suspect]
     Indication: INDUCTION OF ANAESTHESIA
     Route: 042
     Dates: start: 20100316, end: 20100316
  5. SUFENTA [Suspect]
     Indication: INDUCTION OF ANAESTHESIA
     Route: 042
     Dates: start: 20100316, end: 20100316
  6. REMIFENTANIL [Concomitant]
     Dates: start: 20100316

REACTIONS (4)
  - Anaphylactic shock [Recovered/Resolved]
  - Oxygen saturation immeasurable [Unknown]
  - Blood pressure immeasurable [Unknown]
  - Livedo reticularis [Unknown]
